FAERS Safety Report 25656509 (Version 2)
Quarter: 2025Q4

REPORT INFORMATION
  Report Type: Spontaneous
  Country: US (occurrence: US)
  Receive Date: 20250807
  Receipt Date: 20251215
  Transmission Date: 20260117
  Serious: Yes (Other)
  Sender: INCYTE
  Company Number: US-EVENT-003768

PATIENT
  Age: 27 Year
  Weight: 154.2 kg

DRUGS (1)
  1. NIKTIMVO [Suspect]
     Active Substance: AXATILIMAB-CSFR
     Indication: Chronic graft versus host disease
     Dosage: 35 MILLIGRAM, EVERY 2 WEEKS

REACTIONS (1)
  - Anaphylactoid reaction [Recovered/Resolved]
